FAERS Safety Report 20081294 (Version 3)
Quarter: 2024Q1

REPORT INFORMATION
  Report Type: Report from Study
  Country: US (occurrence: US)
  Receive Date: 20211117
  Receipt Date: 20240328
  Transmission Date: 20240410
  Serious: Yes (Other)
  Sender: FDA-Public Use
  Company Number: US-VERTEX PHARMACEUTICALS-2021-016696

PATIENT
  Sex: Male
  Weight: 30 kg

DRUGS (4)
  1. TRIKAFTA [Suspect]
     Active Substance: ELEXACAFTOR\IVACAFTOR\TEZACAFTOR
     Indication: Cystic fibrosis
     Dosage: 2 ORANGE TABS  (50 MG ELEXA/ 25 MG TEZA/ 37.5 MG IVA) IN AM AND 1 BLUE TAB (75 MG IVA) IN PM
     Route: 048
     Dates: start: 20210616, end: 20211013
  2. TRIKAFTA [Suspect]
     Active Substance: ELEXACAFTOR\IVACAFTOR\TEZACAFTOR
     Dosage: 2 ORANGE TABS DURING THE DAY, NO BLUE TAB
     Route: 048
     Dates: start: 202209
  3. DUPIXENT [Concomitant]
     Active Substance: DUPILUMAB
  4. PULMOZYME [Concomitant]
     Active Substance: DORNASE ALFA

REACTIONS (3)
  - Gamma-glutamyltransferase increased [Unknown]
  - Alanine aminotransferase increased [Unknown]
  - Aspartate aminotransferase increased [Unknown]
